FAERS Safety Report 15585001 (Version 1)
Quarter: 2018Q4

REPORT INFORMATION
  Report Type: Spontaneous
  Country: GB (occurrence: GB)
  Receive Date: 20181102
  Receipt Date: 20181102
  Transmission Date: 20190205
  Serious: Yes (Other)
  Sender: FDA-Public Use
  Company Number: GB-MYLANLABS-2018M1080438

PATIENT
  Sex: Male

DRUGS (8)
  1. SODIUM VALPROATE [Suspect]
     Active Substance: VALPROATE SODIUM
     Indication: BIPOLAR DISORDER
     Dosage: 3 G, QD
  2. LITHIUM. [Suspect]
     Active Substance: LITHIUM
     Indication: BIPOLAR DISORDER
     Dosage: 600 MG, QD
  3. HALOPERIDOL. [Suspect]
     Active Substance: HALOPERIDOL
     Indication: BIPOLAR DISORDER
     Dosage: 5 MG MAX TO 20 MG/DAY
  4. LITHIUM. [Suspect]
     Active Substance: LITHIUM
     Dosage: 400 MG, QD
     Dates: start: 2018
  5. HALOPERIDOL. [Suspect]
     Active Substance: HALOPERIDOL
     Dosage: 20 MG, QD
     Dates: start: 2018
  6. OLANZAPINE. [Suspect]
     Active Substance: OLANZAPINE
     Indication: BIPOLAR DISORDER
     Dosage: 30 MG, QD
  7. LITHIUM. [Suspect]
     Active Substance: LITHIUM
     Dosage: UNK
     Dates: start: 2018
  8. HALOPERIDOL. [Suspect]
     Active Substance: HALOPERIDOL
     Dosage: UNK
     Dates: start: 201807

REACTIONS (1)
  - Drug ineffective [Unknown]
